FAERS Safety Report 5915682-2 (Version None)
Quarter: 2008Q4

REPORT INFORMATION
  Report Type: 
  Country: None (occurrence: None)
  Receive Date: 20081010
  Receipt Date: 20081002
  Transmission Date: 20090506
  Serious: Yes (Other)
  Sender: FDA-Public Use
  Company Number: US-ASTRAZENECA-2008UW21318

PATIENT

DRUGS (1)
  1. CRESTOR [Suspect]
     Dosage: 5MG
     Route: 048

REACTIONS (1)
  - RENAL FAILURE [None]
